FAERS Safety Report 4589659-6 (Version None)
Quarter: 2005Q1

REPORT INFORMATION
  Report Type: 
  Country: None (occurrence: None)
  Receive Date: 20050216
  Receipt Date: 20050204
  Transmission Date: 20050727
  Serious: Yes (Hospitalization)
  Sender: FDA-Public Use
  Company Number: TCI2005A00158

PATIENT
  Age: 75 Year
  Sex: Male

DRUGS (20)
  1. PIOGLITAZONE HCL [Suspect]
     Indication: DIABETES MELLITUS NON-INSULIN-DEPENDENT
     Dosage: SEE IMAGE
     Route: 048
     Dates: start: 20031211, end: 20040204
  2. PIOGLITAZONE HCL [Suspect]
     Indication: DIABETES MELLITUS NON-INSULIN-DEPENDENT
     Dosage: SEE IMAGE
     Route: 048
     Dates: start: 20040205
  3. VOGLIBOSE (VOGLIBOSE) [Suspect]
     Indication: DIABETES MELLITUS NON-INSULIN-DEPENDENT
     Dosage: SEE IMAGE
     Route: 048
     Dates: start: 20031210, end: 20031210
  4. VOGLIBOSE (VOGLIBOSE) [Suspect]
     Indication: DIABETES MELLITUS NON-INSULIN-DEPENDENT
     Dosage: SEE IMAGE
     Route: 048
     Dates: start: 20031211, end: 20040524
  5. VOGLIBOSE (VOGLIBOSE) [Suspect]
     Indication: DIABETES MELLITUS NON-INSULIN-DEPENDENT
     Dosage: SEE IMAGE
     Route: 048
     Dates: start: 20040525, end: 20040525
  6. BASEN (VOGLIBOSE) [Suspect]
     Indication: DIABETES MELLITUS NON-INSULIN-DEPENDENT
     Dosage: SEE IMAGE
     Route: 048
     Dates: start: 20030403, end: 20031209
  7. BASEN (VOGLIBOSE) [Suspect]
     Indication: DIABETES MELLITUS NON-INSULIN-DEPENDENT
     Dosage: SEE IMAGE
     Route: 048
     Dates: start: 20031210, end: 20031210
  8. BASEN (VOGLIBOSE) [Suspect]
     Indication: DIABETES MELLITUS NON-INSULIN-DEPENDENT
     Dosage: SEE IMAGE
     Route: 048
     Dates: start: 20040525, end: 20040525
  9. BASEN (VOGLIBOSE) [Suspect]
     Indication: DIABETES MELLITUS NON-INSULIN-DEPENDENT
     Dosage: SEE IMAGE
     Route: 048
     Dates: start: 20040526
  10. MICARDIS [Concomitant]
  11. PL (PL GRAN.) [Concomitant]
  12. CEFZON (CEFDINIR) [Concomitant]
  13. OTHER COLD COMBINATION PREPARATIONS [Concomitant]
  14. AMOXICILLIN [Concomitant]
  15. MEDICON (DEXTROMETHORPHAN HYDROBROMIDE) [Concomitant]
  16. MUCODYNE (CARBOCISTEINE) [Concomitant]
  17. TRANSAMIN (TRANEXAMIC ACID) [Concomitant]
  18. HUSTAZOL (CLOPERASTINE HYDROCHLORIDE) [Concomitant]
  19. AMARYL [Concomitant]
  20. MELLBIN (METFORMIN HYDROCHLORIDE) [Concomitant]

REACTIONS (3)
  - BLADDER CANCER [None]
  - RENAL CYST [None]
  - TRANSITIONAL CELL CARCINOMA [None]
